FAERS Safety Report 9303197 (Version 1)
Quarter: 2013Q2

REPORT INFORMATION
  Report Type: Spontaneous
  Country: CN (occurrence: CN)
  Receive Date: 20130522
  Receipt Date: 20130522
  Transmission Date: 20140414
  Serious: Yes (Hospitalization)
  Sender: FDA-Public Use
  Company Number: CN-JNJFOC-20130508721

PATIENT
  Age: 69 Year
  Sex: Male

DRUGS (4)
  1. SPORANOX [Suspect]
     Indication: PNEUMONIA FUNGAL
     Route: 048
     Dates: start: 20121016, end: 20121026
  2. DOXORUBICIN [Suspect]
     Indication: PLASMA CELL MYELOMA
     Route: 042
     Dates: start: 20121022, end: 20121026
  3. VINCRISTINE [Suspect]
     Indication: PLASMA CELL MYELOMA
     Route: 065
     Dates: start: 20121022, end: 20121026
  4. DEXAMETHASONE [Suspect]
     Indication: PLASMA CELL MYELOMA
     Route: 065
     Dates: start: 20121022, end: 20121026

REACTIONS (1)
  - Hepatic function abnormal [Recovering/Resolving]
